FAERS Safety Report 19601586 (Version 1)
Quarter: 2021Q3

REPORT INFORMATION
  Report Type: Spontaneous
  Country: US (occurrence: US)
  Receive Date: 20210723
  Receipt Date: 20210723
  Transmission Date: 20211014
  Serious: Yes (Hospitalization)
  Sender: FDA-Public Use
  Company Number: US-SA-2021SA177215

PATIENT
  Age: 76 Year
  Sex: Male

DRUGS (4)
  1. DUPIXENT [Suspect]
     Active Substance: DUPILUMAB
     Indication: NASAL POLYPS
     Dosage: 300 MG (FREQUENCY: OTHER)
     Route: 058
     Dates: start: 20200701
  2. DUPIXENT [Suspect]
     Active Substance: DUPILUMAB
     Indication: NASAL POLYPS
     Dosage: 300 MG (FREQUENCY: OTHER)
     Route: 058
     Dates: start: 202001
  3. DUPIXENT [Suspect]
     Active Substance: DUPILUMAB
     Indication: NASAL POLYPS
     Dosage: 300 MG (FREQUENCY: OTHER)
     Route: 058
     Dates: start: 20200701
  4. DUPIXENT [Suspect]
     Active Substance: DUPILUMAB
     Indication: NASAL POLYPS
     Dosage: 300 MG (FREQUENCY: OTHER)
     Route: 058
     Dates: start: 202001

REACTIONS (3)
  - Dizziness [Unknown]
  - Cardiac disorder [Unknown]
  - Conjunctivitis [Unknown]
